FAERS Safety Report 16300858 (Version 2)
Quarter: 2019Q2

REPORT INFORMATION
  Report Type: Report from Study
  Country: CA (occurrence: CA)
  Receive Date: 20190510
  Receipt Date: 20190527
  Transmission Date: 20190711
  Serious: Yes (Other)
  Sender: FDA-Public Use
  Company Number: CA-BRISTOL-MYERS SQUIBB COMPANY-BMS-2019-038279

PATIENT
  Sex: Male

DRUGS (2)
  1. YERVOY [Suspect]
     Active Substance: IPILIMUMAB
     Indication: RENAL CELL CARCINOMA
     Dosage: 69.3 MILLIGRAM, Q3WK
     Route: 042
     Dates: start: 20190329
  2. NIVOLUMAB [Suspect]
     Active Substance: NIVOLUMAB
     Indication: RENAL CELL CARCINOMA
     Dosage: 208 MILLIGRAM, Q3WK
     Route: 042
     Dates: start: 20190329

REACTIONS (5)
  - Fatigue [Unknown]
  - Haemorrhage urinary tract [Unknown]
  - Oropharyngeal pain [Recovered/Resolved]
  - Haemoglobin decreased [Unknown]
  - Constipation [Unknown]
